FAERS Safety Report 5722018-9 (Version None)
Quarter: 2008Q2

REPORT INFORMATION
  Report Type: 
  Country: None (occurrence: None)
  Receive Date: 20080429
  Receipt Date: 20080421
  Transmission Date: 20081010
  Serious: Yes (Hospitalization)
  Sender: FDA-Public Use
  Company Number: ES-PFIZER INC-2008034595

PATIENT
  Age: 88 Year
  Sex: Female

DRUGS (2)
  1. NORVASC [Suspect]
     Indication: ACUTE MYOCARDIAL INFARCTION
     Route: 048
     Dates: start: 20070101, end: 20070823
  2. LANACORDIN [Interacting]
     Route: 048
     Dates: start: 20070101, end: 20070823

REACTIONS (2)
  - BRADYCARDIA [None]
  - DRUG INTERACTION [None]
